FAERS Safety Report 17862859 (Version 2)
Quarter: 2020Q2

REPORT INFORMATION
  Report Type: Report from Study
  Country: PA (occurrence: PA)
  Receive Date: 20200605
  Receipt Date: 20200630
  Transmission Date: 20200714
  Serious: Yes (Hospitalization, Other)
  Sender: FDA-Public Use
  Company Number: PA-ROCHE-2308135

PATIENT
  Age: 15 Year
  Sex: Female
  Weight: 50 kg

DRUGS (24)
  1. XOLAIR [Suspect]
     Active Substance: OMALIZUMAB
     Dosage: UNK
     Route: 058
     Dates: start: 20171206
  2. OXIS [Concomitant]
     Active Substance: FORMOTEROL FUMARATE
     Indication: PRODUCT USED FOR UNKNOWN INDICATION
     Dosage: 1 DF (1 PUFF), BID
     Route: 055
  3. ZOLEDRONIC ACID [Suspect]
     Active Substance: ZOLEDRONIC ACID
     Indication: SPINAL DISORDER
     Route: 042
  4. ZOLEDRONIC ACID [Suspect]
     Active Substance: ZOLEDRONIC ACID
     Route: 042
     Dates: start: 20190628
  5. ASMANEX [Concomitant]
     Active Substance: MOMETASONE FUROATE
     Indication: PRODUCT USED FOR UNKNOWN INDICATION
     Route: 065
  6. OMEPRAZOLE. [Concomitant]
     Active Substance: OMEPRAZOLE
     Indication: PRODUCT USED FOR UNKNOWN INDICATION
     Route: 065
  7. XOLAIR [Suspect]
     Active Substance: OMALIZUMAB
     Route: 058
  8. MOMETASONE [Concomitant]
     Active Substance: MOMETASONE
     Indication: PRODUCT USED FOR UNKNOWN INDICATION
     Dosage: 2 DF, TID (APPROXIMATELY SINCE 6 YEARS)
     Route: 055
  9. FORMOTEROL [Concomitant]
     Active Substance: FORMOTEROL
     Indication: PRODUCT USED FOR UNKNOWN INDICATION
     Route: 065
  10. XOLAIR [Suspect]
     Active Substance: OMALIZUMAB
     Indication: ASTHMA
     Route: 058
     Dates: start: 20141114
  11. DIPHENHYDRAMINE. [Suspect]
     Active Substance: DIPHENHYDRAMINE
     Indication: ASTHMATIC CRISIS
     Route: 065
  12. TIOTROPIUM [Concomitant]
     Active Substance: TIOTROPIUM
     Indication: PRODUCT USED FOR UNKNOWN INDICATION
     Dosage: UNK UNK, QD
     Route: 055
  13. XOLAIR [Suspect]
     Active Substance: OMALIZUMAB
     Route: 058
     Dates: start: 20200408
  14. SUCRALFATE. [Concomitant]
     Active Substance: SUCRALFATE
     Indication: PRODUCT USED FOR UNKNOWN INDICATION
     Dosage: 2 DF, UNK
     Route: 065
  15. XOLAIR [Suspect]
     Active Substance: OMALIZUMAB
     Route: 058
     Dates: start: 201910
  16. GRAVOL [Suspect]
     Active Substance: DIMENHYDRINATE
     Indication: NAUSEA
  17. METFORMIN [Concomitant]
     Active Substance: METFORMIN HYDROCHLORIDE
     Indication: PRODUCT USED FOR UNKNOWN INDICATION
     Dosage: 1 DF, QD
     Route: 065
  18. XOLAIR [Suspect]
     Active Substance: OMALIZUMAB
     Dosage: UNK
     Route: 058
     Dates: start: 20170201
  19. XOLAIR [Suspect]
     Active Substance: OMALIZUMAB
     Route: 058
     Dates: start: 20171010
  20. XOLAIR [Suspect]
     Active Substance: OMALIZUMAB
     Route: 058
     Dates: start: 20150515
  21. XOLAIR [Suspect]
     Active Substance: OMALIZUMAB
     Dosage: UNK
     Route: 058
     Dates: start: 20170322
  22. XOLAIR [Suspect]
     Active Substance: OMALIZUMAB
     Dosage: UNK
     Route: 058
     Dates: start: 20171010
  23. XOLAIR [Suspect]
     Active Substance: OMALIZUMAB
     Route: 058
  24. GRAVOL [Suspect]
     Active Substance: DIMENHYDRINATE
     Indication: ASTHMATIC CRISIS
     Route: 065

REACTIONS (37)
  - Rhinitis [Unknown]
  - Chest discomfort [Unknown]
  - Drug ineffective [Unknown]
  - Skin discolouration [Unknown]
  - Respiratory tract congestion [Unknown]
  - Cough [Unknown]
  - Respiratory distress [Recovering/Resolving]
  - Pulmonary mass [Recovering/Resolving]
  - Contusion [Unknown]
  - Nasal disorder [Unknown]
  - Dyspnoea [Recovered/Resolved]
  - Malaise [Recovering/Resolving]
  - Sensitivity to weather change [Unknown]
  - Acute respiratory failure [Recovering/Resolving]
  - Throat tightness [Recovering/Resolving]
  - Asthmatic crisis [Recovering/Resolving]
  - Throat irritation [Unknown]
  - Loss of consciousness [Recovering/Resolving]
  - Headache [Not Recovered/Not Resolved]
  - Weight decreased [Unknown]
  - Nausea [Unknown]
  - Epistaxis [Unknown]
  - Feeling abnormal [Unknown]
  - Underweight [Unknown]
  - Chest pain [Not Recovered/Not Resolved]
  - Agitation [Unknown]
  - Back pain [Unknown]
  - Hypoaesthesia oral [Recovering/Resolving]
  - Productive cough [Unknown]
  - Somnolence [Unknown]
  - Pain [Unknown]
  - Oxygen saturation decreased [Unknown]
  - Hypersensitivity [Unknown]
  - Gastrooesophageal reflux disease [Unknown]
  - Spirometry abnormal [Unknown]
  - Nasopharyngitis [Unknown]
  - Decreased immune responsiveness [Unknown]

NARRATIVE: CASE EVENT DATE: 201704
